FAERS Safety Report 4506291-0 (Version None)
Quarter: 2004Q4

REPORT INFORMATION
  Report Type: 
  Country: None (occurrence: None)
  Receive Date: 20041025
  Receipt Date: 20040507
  Transmission Date: 20050328
  Serious: Yes (Other)
  Sender: FDA-Public Use
  Company Number: US-JNJFOC-20040201090

PATIENT
  Age: 67 Year
  Sex: Female
  Weight: 93.2142 kg

DRUGS (12)
  1. REMICADE [Suspect]
     Indication: CROHN'S DISEASE
     Dosage: SEE IMAGE
     Dates: start: 20010101
  2. REMICADE [Suspect]
     Indication: CROHN'S DISEASE
     Dosage: SEE IMAGE
     Dates: start: 20020308
  3. REMICADE [Suspect]
     Indication: CROHN'S DISEASE
     Dosage: SEE IMAGE
     Dates: start: 20030101
  4. REMICADE [Suspect]
     Indication: CROHN'S DISEASE
     Dosage: SEE IMAGE
     Dates: start: 20040116
  5. REMICADE [Suspect]
  6. PENTASA [Concomitant]
  7. MERCAPTOPURINE [Concomitant]
  8. FOSAMAX [Concomitant]
  9. NORVASC [Concomitant]
  10. CRESTOR (ALL OTHER THERAPEUTIC PRODUCTS) [Concomitant]
  11. DOXAZOSIN MESYLATE [Concomitant]
  12. ASACOL [Concomitant]

REACTIONS (9)
  - BLOOD PRESSURE INCREASED [None]
  - DIARRHOEA HAEMORRHAGIC [None]
  - HYPOAESTHESIA [None]
  - LIVER FUNCTION TEST ABNORMAL [None]
  - OSTEOPENIA [None]
  - PAIN IN JAW [None]
  - SERUM SICKNESS [None]
  - SMOOTH MUSCLE ANTIBODY POSITIVE [None]
  - VOMITING [None]
